FAERS Safety Report 9246913 (Version 1)
Quarter: 2013Q2

REPORT INFORMATION
  Report Type: Spontaneous
  Country: GB (occurrence: GB)
  Receive Date: 20130422
  Receipt Date: 20130422
  Transmission Date: 20140414
  Serious: Yes (Hospitalization, Other)
  Sender: FDA-Public Use
  Company Number: GB-009507513-1304GBR009027

PATIENT
  Age: 69 Year
  Sex: Male

DRUGS (3)
  1. DEXAMETHASONE [Suspect]
     Indication: PLASMA CELL MYELOMA
  2. LENALIDOMIDE [Suspect]
     Indication: PLASMA CELL MYELOMA
  3. INVESTIGATIONAL DRUG (UNSPECIFIED) [Suspect]
     Indication: PLASMA CELL MYELOMA

REACTIONS (4)
  - Herpes zoster [Recovered/Resolved]
  - Transient ischaemic attack [Unknown]
  - Cerebrovascular accident [Unknown]
  - Hemianopia homonymous [Unknown]
